FAERS Safety Report 9526347 (Version 1)
Quarter: 2013Q1

REPORT INFORMATION
  Report Type: Spontaneous
  Country: US (occurrence: None)
  Receive Date: 20130305
  Receipt Date: 20130305
  Transmission Date: 20140127
  Serious: Yes (Hospitalization)
  Sender: FDA-Public Use
  Company Number: 163-21880-12030891

PATIENT
  Age: 68 Year
  Sex: Male

DRUGS (9)
  1. REVLIMID (LENALIDOMIDE) (CAPSULES) [Suspect]
     Indication: PLASMA CELL MYELOMA
     Route: 048
     Dates: start: 201107
  2. REVLIMID (LENALIDOMIDE) (CAPSULES) [Suspect]
     Indication: CARDIAC AMYLOIDOSIS
     Route: 048
     Dates: start: 201107
  3. IRON PILLS (IRON) [Suspect]
     Indication: PRODUCT USED FOR UNKNOWN INDICATION
  4. DEXAMETHASONE (DEXAMETHASONE) [Concomitant]
  5. LIPITOR (ATORVASTATIN) [Concomitant]
  6. ASPIRIN (ACETYLSALICYLIC ACID) [Concomitant]
  7. NITROGLYCERIN (GLYCERYL TRINITRATE) [Concomitant]
  8. ZANTAC (RANITIDINE HYDROCHLORIDE) [Concomitant]
  9. CALCIFEROL (ERGOCALCIFEROL) [Concomitant]

REACTIONS (7)
  - Diarrhoea [None]
  - Vomiting [None]
  - Renal failure [None]
  - Nausea [None]
  - Failure to thrive [None]
  - Fatigue [None]
  - Asthenia [None]
